FAERS Safety Report 25774004 (Version 1)
Quarter: 2025Q3

REPORT INFORMATION
  Report Type: Spontaneous
  Country: US (occurrence: US)
  Receive Date: 20250908
  Receipt Date: 20250908
  Transmission Date: 20251020
  Serious: Yes (Hospitalization, Other)
  Sender: NOVO NORDISK
  Company Number: US-NOVOPROD-1510066

PATIENT
  Sex: Male

DRUGS (1)
  1. INSULIN ASPART [Suspect]
     Active Substance: INSULIN ASPART
     Indication: Diabetes mellitus

REACTIONS (11)
  - Road traffic accident [Unknown]
  - Visual impairment [Unknown]
  - Intraocular pressure increased [Recovered/Resolved]
  - Frequent bowel movements [Unknown]
  - Vomiting [Unknown]
  - Cataract [Recovered/Resolved]
  - Cataract [Recovering/Resolving]
  - Gait inability [Unknown]
  - Retinal operation [Recovered/Resolved]
  - Fall [Unknown]
  - Visual impairment [Unknown]

NARRATIVE: CASE EVENT DATE: 20180101
